FAERS Safety Report 24864709 (Version 1)
Quarter: 2025Q1

REPORT INFORMATION
  Report Type: Spontaneous
  Country: US (occurrence: US)
  Receive Date: 20250121
  Receipt Date: 20250121
  Transmission Date: 20250409
  Serious: Yes (Other)
  Sender: JOHNSON AND JOHNSON
  Company Number: US-JNJFOC-20250132300

PATIENT
  Sex: Female

DRUGS (2)
  1. GUSELKUMAB [Suspect]
     Active Substance: GUSELKUMAB
     Indication: Product used for unknown indication
  2. GUSELKUMAB [Suspect]
     Active Substance: GUSELKUMAB

REACTIONS (3)
  - Blindness [Unknown]
  - Needle issue [Unknown]
  - Product dose omission issue [Unknown]
